FAERS Safety Report 10186433 (Version 3)
Quarter: 2015Q1

REPORT INFORMATION
  Report Type: Spontaneous
  Country: US (occurrence: US)
  Receive Date: 20140521
  Receipt Date: 20150310
  Transmission Date: 20150720
  Serious: No
  Sender: FDA-Public Use
  Company Number: US-ASTRAZENECA-2013SE89548

PATIENT
  Age: 79 Year
  Sex: Female
  Weight: 60.8 kg

DRUGS (8)
  1. OMEPRAZOLE. [Suspect]
     Active Substance: OMEPRAZOLE
     Indication: GASTROOESOPHAGEAL REFLUX DISEASE
     Route: 048
     Dates: start: 2011
  2. STMBRINZE [Concomitant]
     Indication: GLAUCOMA
     Route: 047
     Dates: start: 2013
  3. PULMICORT FLEXHALER [Suspect]
     Active Substance: BUDESONIDE
     Indication: ASTHMA
     Dosage: 180 MCG, ONE PUFF DAILY
     Route: 055
     Dates: start: 2013
  4. PEPCID [Concomitant]
     Active Substance: FAMOTIDINE
     Indication: GASTROOESOPHAGEAL REFLUX DISEASE
     Route: 048
     Dates: start: 2011
  5. LUMIGAN [Concomitant]
     Active Substance: BIMATOPROST
     Indication: GLAUCOMA
     Route: 047
     Dates: start: 2000
  6. RESTASIS [Concomitant]
     Active Substance: CYCLOSPORINE
     Indication: GLAUCOMA
     Route: 047
     Dates: start: 2000
  7. UNSPECIFIED CHOLESTEROL- LOWERING MEDICATION [Concomitant]
  8. PULMICORT FLEXHALER [Suspect]
     Active Substance: BUDESONIDE
     Indication: ASTHMA
     Dosage: 180 MCG, ONE PUFF TWO TIMES A DAY
     Route: 055
     Dates: start: 2012

REACTIONS (5)
  - Glaucoma [Not Recovered/Not Resolved]
  - Visual impairment [Unknown]
  - Off label use [Unknown]
  - Drug dose omission [Not Recovered/Not Resolved]
  - Intentional product misuse [Recovered/Resolved]

NARRATIVE: CASE EVENT DATE: 2013
